FAERS Safety Report 10346939 (Version 1)
Quarter: 2014Q3

REPORT INFORMATION
  Report Type: Spontaneous
  Country: US (occurrence: US)
  Receive Date: 20140729
  Receipt Date: 20140729
  Transmission Date: 20150326
  Serious: No
  Sender: FDA-Public Use
  Company Number: US-GLAXOSMITHKLINE-A1046475A

PATIENT
  Age: 72 Year
  Sex: Male

DRUGS (5)
  1. ISOSORBIDE [Concomitant]
     Active Substance: ISOSORBIDE
  2. CRESTOR [Concomitant]
     Active Substance: ROSUVASTATIN CALCIUM
  3. LEVOTHYROXINE [Concomitant]
     Active Substance: LEVOTHYROXINE
  4. JALYN [Suspect]
     Active Substance: DUTASTERIDE\TAMSULOSIN HYDROCHLORIDE
     Indication: BENIGN PROSTATIC HYPERPLASIA
     Dosage: 1CAP PER DAY
     Route: 048
  5. TENORMIN [Concomitant]
     Active Substance: ATENOLOL

REACTIONS (2)
  - Eructation [Unknown]
  - Abdominal distension [Unknown]
